FAERS Safety Report 11592896 (Version 5)
Quarter: 2017Q3

REPORT INFORMATION
  Report Type: Report from Study
  Country: FR (occurrence: FR)
  Receive Date: 20151005
  Receipt Date: 20170718
  Transmission Date: 20171127
  Serious: Yes (Hospitalization)
  Sender: FDA-Public Use
  Company Number: FR-B.I. PHARMACEUTICALS,INC./RIDGEFIELD-2015-BI-52610BI

PATIENT
  Age: 4 Year
  Sex: Female
  Weight: 17.2 kg

DRUGS (9)
  1. AFATINIB [Suspect]
     Active Substance: AFATINIB
     Indication: EPENDYMOMA
     Route: 048
     Dates: start: 20150902
  2. AFATINIB [Suspect]
     Active Substance: AFATINIB
     Route: 048
     Dates: end: 20160418
  3. AFATINIB [Suspect]
     Active Substance: AFATINIB
     Route: 048
     Dates: start: 20160418
  4. L-THYROXINE [Concomitant]
     Active Substance: LEVOTHYROXINE
     Indication: HYPOTHYROIDISM
     Route: 048
  5. AFATINIB [Suspect]
     Active Substance: AFATINIB
     Route: 048
     Dates: end: 20160121
  6. AFATINIB [Suspect]
     Active Substance: AFATINIB
     Route: 048
     Dates: end: 20160222
  7. BACTRIM [Concomitant]
     Active Substance: SULFAMETHOXAZOLE\TRIMETHOPRIM
     Indication: ANTIFUNGAL PROPHYLAXIS
     Route: 048
  8. AFATINIB [Suspect]
     Active Substance: AFATINIB
     Route: 048
     Dates: start: 20160125
  9. AFATINIB [Suspect]
     Active Substance: AFATINIB
     Route: 048
     Dates: end: 20160316

REACTIONS (6)
  - Headache [Recovered/Resolved]
  - Proteinuria [Recovered/Resolved]
  - Vomiting [Recovered/Resolved]
  - Gastroenteritis viral [Recovered/Resolved]
  - Visual acuity reduced [Unknown]
  - Proteinuria [Recovered/Resolved]

NARRATIVE: CASE EVENT DATE: 20150922
